FAERS Safety Report 5476646-9 (Version None)
Quarter: 2007Q4

REPORT INFORMATION
  Report Type: 
  Country: None (occurrence: None)
  Receive Date: 20071004
  Receipt Date: 20071002
  Transmission Date: 20080405
  Serious: Yes (Other)
  Sender: FDA-Public Use
  Company Number: PT-JNJFOC-20070905723

PATIENT
  Sex: Female
  Weight: 44 kg

DRUGS (8)
  1. PALIPERIDONE [Suspect]
     Indication: SCHIZOPHRENIA
  2. FERROUS FUMURATE [Concomitant]
     Indication: ANAEMIA
  3. OLANZAPINE [Concomitant]
     Route: 048
  4. QUETIAPINE FUMARATE [Concomitant]
     Route: 048
  5. LORAZEPAM [Concomitant]
     Indication: ANXIETY
  6. FLURAZEPAM [Concomitant]
     Indication: INSOMNIA
  7. ANTI INFLAMMATORY [Concomitant]
     Indication: ARTHRALGIA
  8. GLUCOSAMINE [Concomitant]
     Indication: ARTHRALGIA

REACTIONS (2)
  - EPILEPSY [None]
  - HYPOTENSION [None]
